FAERS Safety Report 21520099 (Version 6)
Quarter: 2023Q1

REPORT INFORMATION
  Report Type: Report from Study
  Country: KR (occurrence: None)
  Receive Date: 20221028
  Receipt Date: 20230202
  Transmission Date: 20230417
  Serious: Yes (Hospitalization)
  Sender: FDA-Public Use
  Company Number: KR-Eisai Medical Research-EC-2022-126844

PATIENT
  Age: 70 Year
  Sex: Male
  Weight: 75 kg

DRUGS (23)
  1. LENVATINIB [Suspect]
     Active Substance: LENVATINIB
     Indication: Hepatocellular carcinoma
     Dosage: STARTING DOSE 12 MG, FLUCTUATED DOSAGE
     Route: 048
     Dates: start: 20210209, end: 20221010
  2. PEMBROLIZUMAB [Suspect]
     Active Substance: PEMBROLIZUMAB
     Indication: Hepatocellular carcinoma
     Route: 042
     Dates: start: 20210209, end: 20220920
  3. ETHIODIZED OIL [Suspect]
     Active Substance: ETHIODIZED OIL
     Indication: Hepatocellular carcinoma
     Dosage: DOSE AND FREQUENCY UNKNOWN
     Dates: start: 20210304, end: 20210511
  4. AMOSARTAN [Concomitant]
     Dates: start: 20210104
  5. SOMETO [Concomitant]
     Dates: start: 201001
  6. ENTECAVIR [Concomitant]
     Active Substance: ENTECAVIR
     Dates: start: 20210112
  7. LIVACT [ISOLEUCINE;LEUCINE;VALINE] [Concomitant]
     Dates: start: 20210316
  8. CREDOUBLE [Concomitant]
     Dates: start: 20210323
  9. ROTIGY [Concomitant]
     Dates: start: 201001
  10. TAMLOSTAR [Concomitant]
     Dates: start: 201001
  11. AVODART [Concomitant]
     Active Substance: DUTASTERIDE
     Dates: start: 201001
  12. HYTRIN [Concomitant]
     Active Substance: TERAZOSIN HYDROCHLORIDE
     Dates: start: 201001
  13. EXAD [Concomitant]
     Dates: start: 201001
  14. MOSARIN [Concomitant]
     Dates: start: 201001
  15. TAROMA [Concomitant]
     Dates: start: 20201203
  16. URSODIOL [Concomitant]
     Active Substance: URSODIOL
     Dates: start: 20210104
  17. ORABITEN [Concomitant]
     Dates: start: 20210615
  18. TRIMEBUTINE MALEATE [Concomitant]
     Active Substance: TRIMEBUTINE MALEATE
     Dates: start: 20210615
  19. PENTOXIFYLLINE [Concomitant]
     Active Substance: PENTOXIFYLLINE
     Dates: start: 20210706
  20. SULGLICOTIDE [Concomitant]
     Dates: start: 20210706
  21. GRIATIN [Concomitant]
     Dates: start: 201001
  22. MEGACE F [Concomitant]
     Route: 048
     Dates: start: 20220203
  23. LIVIDI [Concomitant]
     Dates: start: 20220222

REACTIONS (1)
  - Blood bilirubin increased [Recovered/Resolved]

NARRATIVE: CASE EVENT DATE: 20221011
